FAERS Safety Report 5545486-4 (Version None)
Quarter: 2007Q4

REPORT INFORMATION
  Report Type: 
  Country: None (occurrence: None)
  Receive Date: 20071126
  Receipt Date: 20070427
  Transmission Date: 20080405
  Serious: Yes (Other)
  Sender: FDA-Public Use
  Company Number: 2007BH003988

PATIENT
  Age: 53 Year
  Sex: Male

DRUGS (6)
  1. DIANEAL [Suspect]
     Indication: PERITONEAL DIALYSIS
     Dosage: 5 L; IP
     Route: 033
  2. DIANEAL [Suspect]
     Indication: PERITONEAL DIALYSIS
     Dosage: IP
     Route: 033
  3. AMBIEN [Suspect]
     Indication: INSOMNIA
  4. HEPARIN [Concomitant]
  5. INSULIN [Concomitant]
  6. AMBIEN [Concomitant]

REACTIONS (2)
  - DISORIENTATION [None]
  - PERITONITIS BACTERIAL [None]
